FAERS Safety Report 7124427-2 (Version None)
Quarter: 2010Q4

REPORT INFORMATION
  Report Type: 
  Country: None (occurrence: None)
  Receive Date: 20101126
  Receipt Date: 20071121
  Transmission Date: 20110411
  Serious: Yes (Other)
  Sender: FDA-Public Use
  Company Number: PHHY2007NZ03729

PATIENT
  Sex: Male

DRUGS (2)
  1. EXELON [Suspect]
     Indication: DEMENTIA ALZHEIMER'S TYPE
     Dosage: UNK
     Dates: start: 20070823
  2. EXELON [Suspect]
     Dosage: 6 MG, BID
     Dates: start: 20071001

REACTIONS (5)
  - ABNORMAL BEHAVIOUR [None]
  - DYSARTHRIA [None]
  - HALLUCINATION [None]
  - MUSCULOSKELETAL STIFFNESS [None]
  - NAUSEA [None]
